FAERS Safety Report 20072702 (Version 2)
Quarter: 2021Q4

REPORT INFORMATION
  Report Type: Report from Study
  Country: EG (occurrence: EG)
  Receive Date: 20211116
  Receipt Date: 20211204
  Transmission Date: 20220303
  Serious: Yes (Hospitalization, Other)
  Sender: FDA-Public Use
  Company Number: EG-NOVARTISPH-NVSC2021EG255210

PATIENT
  Age: 39 Year
  Sex: Female

DRUGS (9)
  1. COSENTYX [Suspect]
     Active Substance: SECUKINUMAB
     Indication: Ankylosing spondylitis
     Dosage: 150 MG, QMO (1 PEN FOR 3 MONTHS)
     Route: 058
     Dates: start: 2018, end: 2018
  2. COSENTYX [Suspect]
     Active Substance: SECUKINUMAB
     Dosage: 150 MG, QMO (1 PEN PER MONTH)
     Route: 058
     Dates: start: 202009
  3. ARCOXIA [Concomitant]
     Active Substance: ETORICOXIB
     Indication: Ankylosing spondylitis
     Dosage: 1 DF, QD
     Route: 065
     Dates: start: 2018, end: 202109
  4. NEXIUM [Concomitant]
     Active Substance: ESOMEPRAZOLE MAGNESIUM
     Indication: Gastric ulcer
     Dosage: 1 DF, QD
     Route: 065
     Dates: start: 2016
  5. NEXIUM [Concomitant]
     Active Substance: ESOMEPRAZOLE MAGNESIUM
     Dosage: 1 DF, BID
     Route: 065
  6. NEXIUM [Concomitant]
     Active Substance: ESOMEPRAZOLE MAGNESIUM
     Dosage: 1 DF, QD
     Route: 065
  7. REBAMIPIDE [Concomitant]
     Active Substance: REBAMIPIDE
     Indication: Gastric ulcer
     Dosage: 3 DF, QD
     Route: 065
     Dates: start: 2017
  8. DICLOFENAC SODIUM [Concomitant]
     Active Substance: DICLOFENAC SODIUM
     Indication: Antiinflammatory therapy
     Dosage: 1 DF, QD
     Route: 065
     Dates: end: 2017
  9. DICLOFENAC SODIUM [Concomitant]
     Active Substance: DICLOFENAC SODIUM
     Dosage: 1 DF, QD
     Route: 065
     Dates: end: 2018

REACTIONS (11)
  - Nephrolithiasis [Not Recovered/Not Resolved]
  - Symptom recurrence [Unknown]
  - Fatigue [Recovered/Resolved]
  - C-reactive protein increased [Unknown]
  - Inflammation [Unknown]
  - Sacroiliitis [Unknown]
  - Spondylitis [Unknown]
  - Coronavirus infection [Recovered/Resolved]
  - Product use issue [Not Recovered/Not Resolved]
  - Decreased immune responsiveness [Recovered/Resolved]
  - Influenza [Recovered/Resolved]

NARRATIVE: CASE EVENT DATE: 20201201
